FAERS Safety Report 8683611 (Version 2)
Quarter: 2012Q4

REPORT INFORMATION
  Report Type: Report from Study
  Country: CA (occurrence: CA)
  Receive Date: 20120726
  Receipt Date: 20121224
  Transmission Date: 20130627
  Serious: Yes (Other)
  Sender: FDA-Public Use
  Company Number: CA-UCBSA-062172

PATIENT
  Age: 48 Year
  Sex: Female
  Weight: 58.05 kg

DRUGS (4)
  1. CIMZIA [Suspect]
     Indication: RHEUMATOID ARTHRITIS
     Route: 058
     Dates: start: 20100819
  2. CIMZIA [Suspect]
     Indication: RHEUMATOID ARTHRITIS
     Route: 058
     Dates: start: 20100812, end: 20100812
  3. CYMBALTA [Concomitant]
     Indication: FIBROMYALGIA
     Route: 048
     Dates: start: 200908
  4. AMITRIPTYLINE [Concomitant]
     Indication: FIBROMYALGIA
     Dosage: AT BEDTIME.
     Route: 048

REACTIONS (2)
  - Fungal infection [Recovered/Resolved]
  - Influenza like illness [Not Recovered/Not Resolved]
